FAERS Safety Report 7475406-7 (Version None)
Quarter: 2011Q2

REPORT INFORMATION
  Report Type: 
  Country: None (occurrence: None)
  Receive Date: 20110510
  Receipt Date: 20110510
  Transmission Date: 20111010
  Serious: No
  Sender: FDA-Public Use
  Company Number: None

PATIENT
  Sex: Male
  Weight: 92.0802 kg

DRUGS (1)
  1. SUTENT [Suspect]
     Indication: RENAL CELL CARCINOMA
     Dosage: 50MG ONE PO QD P.O.
     Route: 048
     Dates: start: 20110408

REACTIONS (3)
  - HYPERKERATOSIS [None]
  - ERYTHEMA [None]
  - RASH MACULAR [None]
